FAERS Safety Report 8880474 (Version 1)
Quarter: 2012Q4

REPORT INFORMATION
  Report Type: 
  Country: US (occurrence: US)
  Receive Date: 20121101
  Receipt Date: 20121101
  Transmission Date: 20130627
  Serious: No
  Sender: FDA-Public Use
  Company Number: US-ASTRAZENECA-2011SE70924

PATIENT
  Age: 45 Year
  Sex: Female

DRUGS (2)
  1. ZOMIG [Suspect]
     Route: 048
  2. ZOMIG [Suspect]
     Route: 048

REACTIONS (3)
  - Migraine [Unknown]
  - Drug dispensing error [Unknown]
  - Intentional drug misuse [Unknown]
